FAERS Safety Report 14300081 (Version 1)
Quarter: 2017Q4

REPORT INFORMATION
  Report Type: Report from Study
  Country: GB (occurrence: GB)
  Receive Date: 20171219
  Receipt Date: 20171219
  Transmission Date: 20180321
  Serious: Yes (Other)
  Sender: FDA-Public Use
  Company Number: GB-ROCHE-1955666

PATIENT
  Sex: Male

DRUGS (2)
  1. ESBRIET [Suspect]
     Active Substance: PIRFENIDONE
     Indication: IDIOPATHIC PULMONARY FIBROSIS
     Route: 048
     Dates: start: 20170505
  2. ESBRIET [Suspect]
     Active Substance: PIRFENIDONE
     Route: 048
     Dates: start: 20170222

REACTIONS (11)
  - Dyspnoea exertional [Not Recovered/Not Resolved]
  - Oxygen saturation decreased [Unknown]
  - Ill-defined disorder [Unknown]
  - Musculoskeletal chest pain [Not Recovered/Not Resolved]
  - Nasopharyngitis [Unknown]
  - Fatigue [Unknown]
  - Fatigue [Not Recovered/Not Resolved]
  - Dyspnoea [Unknown]
  - Feeling hot [Unknown]
  - Productive cough [Unknown]
  - Cough [Unknown]
